FAERS Safety Report 11348388 (Version 1)
Quarter: 2015Q3

REPORT INFORMATION
  Report Type: Spontaneous
  Country: US (occurrence: US)
  Receive Date: 20150806
  Receipt Date: 20150806
  Transmission Date: 20151125
  Serious: No
  Sender: FDA-Public Use
  Company Number: GXBR2015US001360

PATIENT
  Age: 84 Year
  Sex: Female

DRUGS (4)
  1. MVI//VITAMINS NOS [Concomitant]
     Dosage: UNK DF, UNK
  2. CHOLESTYRAMINE FOR ORAL SUSPENSION USP [Suspect]
     Active Substance: CHOLESTYRAMINE
     Dosage: 2 DF, QD
     Route: 048
  3. CHOLESTYRAMINE FOR ORAL SUSPENSION USP [Suspect]
     Active Substance: CHOLESTYRAMINE
     Indication: DIARRHOEA
     Dosage: 3 DF, QD
     Route: 048
     Dates: start: 201408
  4. CHOLESTYRAMINE FOR ORAL SUSPENSION USP [Suspect]
     Active Substance: CHOLESTYRAMINE
     Dosage: 1 DF, QD
     Route: 048

REACTIONS (3)
  - Diarrhoea [Unknown]
  - Abdominal discomfort [Unknown]
  - Off label use [Not Recovered/Not Resolved]
